FAERS Safety Report 12990622 (Version 1)
Quarter: 2016Q4

REPORT INFORMATION
  Report Type: Spontaneous
  Country: IN (occurrence: IN)
  Receive Date: 20161201
  Receipt Date: 20161201
  Transmission Date: 20170207
  Serious: Yes (Hospitalization, Other)
  Sender: FDA-Public Use
  Company Number: IN-MYLANLABS-2016M1051566

PATIENT

DRUGS (7)
  1. CARBAMAZEPINE. [Concomitant]
     Active Substance: CARBAMAZEPINE
     Indication: BIPOLAR DISORDER
     Dosage: 800 MG/DAY
     Route: 065
  2. MODAFINIL. [Suspect]
     Active Substance: MODAFINIL
     Dosage: 800-1000 MG/DAY IN DIVIDED DOSES
     Route: 065
  3. LITHIUM. [Concomitant]
     Active Substance: LITHIUM
     Indication: BIPOLAR DISORDER
     Dosage: 600 MG/DAY
     Route: 065
  4. LAMOTRIGINE. [Concomitant]
     Active Substance: LAMOTRIGINE
     Indication: BIPOLAR DISORDER
     Dosage: 200 MG/DAY
     Route: 065
  5. MODAFINIL. [Suspect]
     Active Substance: MODAFINIL
     Dosage: 400-600 MG/DAY; THE DOSE WAS INCREASED TO 800-1000 MG/DAY
     Route: 065
  6. VENLAFAXINE [Concomitant]
     Active Substance: VENLAFAXINE HYDROCHLORIDE
     Indication: BIPOLAR DISORDER
     Dosage: 150 MG/DAY
     Route: 065
  7. MODAFINIL. [Suspect]
     Active Substance: MODAFINIL
     Indication: BIPOLAR DISORDER
     Dosage: 200 MG/DAY STARTED 4 YEARS EARLIER; THE DOSE WAS ESCALATED TO 400-600 MG/DAY
     Route: 065

REACTIONS (10)
  - Fatigue [Recovered/Resolved]
  - Withdrawal syndrome [Recovered/Resolved]
  - Psychiatric symptom [Recovered/Resolved]
  - Disturbance in attention [Recovered/Resolved]
  - Drug dependence [Recovered/Resolved]
  - Pain [Recovered/Resolved]
  - Hypersexuality [Recovered/Resolved]
  - Lethargy [Recovered/Resolved]
  - Intentional product misuse [Recovered/Resolved]
  - Depressed mood [Recovered/Resolved]
